FAERS Safety Report 9358958 (Version 2)
Quarter: 2013Q4

REPORT INFORMATION
  Report Type: Spontaneous
  Country: US (occurrence: US)
  Receive Date: 20130620
  Receipt Date: 20131121
  Transmission Date: 20140711
  Serious: Yes (Hospitalization)
  Sender: FDA-Public Use
  Company Number: US-B.I. PHARMACEUTICALS,INC./RIDGEFIELD-2013-BI-17231BP

PATIENT
  Age: 60 Year
  Sex: Male
  Weight: 92.53 kg

DRUGS (9)
  1. PRADAXA [Suspect]
     Indication: ATRIAL FIBRILLATION
     Dosage: 300 MG
     Route: 048
     Dates: start: 20110404
  2. DIOVAN [Concomitant]
     Dosage: 320 MG
     Route: 048
     Dates: start: 2010
  3. CARVEDILOL [Concomitant]
     Dosage: 50 MG
     Route: 048
  4. ASPIRIN [Concomitant]
     Dosage: 81 MG
     Route: 048
     Dates: start: 2011, end: 2012
  5. RANITIDINE [Concomitant]
     Dosage: 300 MG
     Route: 048
  6. PLAVIX [Concomitant]
     Dosage: 75 MG
     Route: 048
  7. AMIODARONE [Concomitant]
     Dosage: 200 MG
     Route: 048
  8. PRAVASTATIN [Concomitant]
     Dosage: 80 MG
     Route: 048
     Dates: start: 2010
  9. JANUMET [Concomitant]
     Route: 048
     Dates: start: 2008

REACTIONS (3)
  - Gastrointestinal haemorrhage [Recovered/Resolved]
  - Haemoglobin decreased [Unknown]
  - Haematocrit decreased [Unknown]
